FAERS Safety Report 24653548 (Version 1)
Quarter: 2024Q4

REPORT INFORMATION
  Report Type: Spontaneous
  Country: US (occurrence: US)
  Receive Date: 20241122
  Receipt Date: 20241122
  Transmission Date: 20250114
  Serious: No
  Sender: NOVO NORDISK
  Company Number: US-NOVOPROD-1135621

PATIENT
  Age: 75 Year
  Sex: Male

DRUGS (1)
  1. TRESIBA [Suspect]
     Active Substance: INSULIN DEGLUDEC
     Indication: Type 2 diabetes mellitus
     Dosage: 28 IU, BID
     Route: 058
     Dates: start: 20190822

REACTIONS (3)
  - Dizziness [Recovered/Resolved]
  - Blood glucose increased [Recovered/Resolved]
  - Drug delivery system malfunction [Unknown]

NARRATIVE: CASE EVENT DATE: 20231029
